FAERS Safety Report 7411913-0 (Version None)
Quarter: 2011Q2

REPORT INFORMATION
  Report Type: 
  Country: None (occurrence: None)
  Receive Date: 20110405
  Receipt Date: 20110317
  Transmission Date: 20111010
  Serious: Yes (Death)
  Sender: FDA-Public Use
  Company Number: 2011P1005340

PATIENT
  Sex: Male

DRUGS (6)
  1. OXYCONTIN [Suspect]
     Dosage: PO
     Route: 048
  2. ACETAMINOPHEN [Suspect]
     Dosage: PO
     Route: 048
  3. MEPROBAMATE [Suspect]
     Dosage: PO
     Route: 048
  4. CARISOPRODOL (NO PREF. NAME) [Suspect]
     Dosage: PO
     Route: 048
  5. HYDROXYZINE [Suspect]
     Dosage: PO
     Route: 048
  6. VALPROIC ACID (NO PREF. NAME) [Suspect]
     Dosage: PO
     Route: 048

REACTIONS (2)
  - CARDIAC ARREST [None]
  - RESPIRATORY ARREST [None]
